FAERS Safety Report 12218520 (Version 7)
Quarter: 2020Q2

REPORT INFORMATION
  Report Type: Report from Study
  Country: US (occurrence: US)
  Receive Date: 20160329
  Receipt Date: 20200521
  Transmission Date: 20200713
  Serious: Yes (Hospitalization, Other)
  Sender: FDA-Public Use
  Company Number: US-ACTELION-A-NJ2016-133645

PATIENT
  Age: 69 Year
  Sex: Female
  Weight: 61.22 kg

DRUGS (5)
  1. COUMADIN [Concomitant]
     Active Substance: WARFARIN SODIUM
     Dosage: ADJUSTED WEEKLY
  2. TRACLEER [Concomitant]
     Active Substance: BOSENTAN
     Dosage: UNK
     Dates: start: 2013, end: 20160131
  3. VENTAVIS [Suspect]
     Active Substance: ILOPROST
     Indication: PULMONARY ARTERIAL HYPERTENSION
     Dosage: 5 MCG, 6-9 X DAILY
     Route: 055
     Dates: start: 20080215
  4. OPSUMIT [Suspect]
     Active Substance: MACITENTAN
     Indication: PULMONARY ARTERIAL HYPERTENSION
     Dosage: UNK
     Route: 048
     Dates: start: 20160201
  5. TADALAFIL. [Concomitant]
     Active Substance: TADALAFIL

REACTIONS (12)
  - Haemoglobin decreased [Not Recovered/Not Resolved]
  - Packed red blood cell transfusion [Unknown]
  - Dysuria [Not Recovered/Not Resolved]
  - Haemodialysis [Unknown]
  - Dyspnoea [Not Recovered/Not Resolved]
  - Blood creatinine increased [Not Recovered/Not Resolved]
  - Anaemia [Not Recovered/Not Resolved]
  - Fatigue [Not Recovered/Not Resolved]
  - Blood urea increased [Not Recovered/Not Resolved]
  - End stage renal disease [Not Recovered/Not Resolved]
  - Atrial flutter [Not Recovered/Not Resolved]
  - Heart rate increased [Not Recovered/Not Resolved]

NARRATIVE: CASE EVENT DATE: 20160314
